FAERS Safety Report 15998173 (Version 1)
Quarter: 2019Q1

REPORT INFORMATION
  Report Type: Spontaneous
  Country: DE (occurrence: DE)
  Receive Date: 20190223
  Receipt Date: 20190223
  Transmission Date: 20190418
  Serious: Yes (Hospitalization)
  Sender: FDA-Public Use
  Company Number: DE-ACCORD-108670

PATIENT
  Age: 18 Year
  Sex: Female
  Weight: 58 kg

DRUGS (9)
  1. ADEKS [Concomitant]
     Indication: PANCREATIC FAILURE
     Dosage: DAILY DOSE: 1 DF DOSAGE FORM EVERY 2 DAYS
     Route: 048
  2. OMEPRAZOLE. [Concomitant]
     Active Substance: OMEPRAZOLE
     Route: 048
  3. SALBUTAMOL [Concomitant]
     Active Substance: ALBUTEROL
     Dosage: DAILY DOSE: 2 DF DOSAGE FORM EVERY DAYS
     Route: 055
  4. FORMOTEROL [Concomitant]
     Active Substance: FORMOTEROL
     Dosage: DAILY DOSE: 12 MG MICROGRAM(S) EVERY DAYS
     Route: 055
  5. TOBRAMYCIN. [Concomitant]
     Active Substance: TOBRAMYCIN
     Indication: PSEUDOMONAS INFECTION
     Dosage: DAILY DOSE: 160 MG MILLGRAM(S) EVERY DAYS
     Route: 055
  6. ITRACONAZOLE. [Suspect]
     Active Substance: ITRACONAZOLE
     Indication: CYSTIC FIBROSIS
     Dosage: DAILY DOSE: 300 MG MILLGRAM(S) EVERY DAYS
     Route: 048
  7. AMBROXOL [Concomitant]
     Active Substance: AMBROXOL
     Dosage: DAILY DOSE: 4 ML MILLILITRE(S) EVERY DAYS
     Route: 055
  8. KREON 25000 [Concomitant]
     Active Substance: PANCRELIPASE
     Indication: PANCREATIC FAILURE
     Route: 048
  9. ORKAMBI [Interacting]
     Active Substance: IVACAFTOR\LUMACAFTOR
     Indication: BRONCHOPULMONARY ASPERGILLOSIS
     Dosage: DAILY DOSE: 2 DF DOSAGE FORM EVERY 2 DAYS
     Route: 048

REACTIONS (7)
  - Peripheral vascular disorder [Recovering/Resolving]
  - Tension headache [Recovering/Resolving]
  - Tachycardia [Recovering/Resolving]
  - Paraesthesia [Recovering/Resolving]
  - Drug interaction [Unknown]
  - Abdominal pain upper [Recovering/Resolving]
  - Dyspnoea [Recovering/Resolving]

NARRATIVE: CASE EVENT DATE: 20180609
